FAERS Safety Report 5008213-5 (Version None)
Quarter: 2006Q2

REPORT INFORMATION
  Report Type: 
  Country: None (occurrence: None)
  Receive Date: 20060523
  Receipt Date: 20060512
  Transmission Date: 20061013
  Serious: Yes (Other)
  Sender: FDA-Public Use
  Company Number: PHBS2006JP07284

PATIENT

DRUGS (2)
  1. LOCHOL [Suspect]
     Dosage: 20 MG/DAY
     Dates: start: 20060425, end: 20060505
  2. LOCHOL [Suspect]
     Dosage: 40 MG/DAY
     Dates: start: 20060506

REACTIONS (4)
  - BLOOD CREATININE INCREASED [None]
  - BLOOD POTASSIUM INCREASED [None]
  - BLOOD UREA INCREASED [None]
  - RENAL IMPAIRMENT [None]
